FAERS Safety Report 25918520 (Version 4)
Quarter: 2025Q4

REPORT INFORMATION
  Report Type: Report from Study
  Country: EU (occurrence: EU)
  Receive Date: 20251014
  Receipt Date: 20251219
  Transmission Date: 20260117
  Serious: Yes (Hospitalization)
  Sender: INSMED
  Company Number: EU-INSMED, INC.-2025-04354-DE

PATIENT
  Age: 63 Year
  Sex: Female

DRUGS (1)
  1. ARIKAYCE [Suspect]
     Active Substance: AMIKACIN
     Indication: Atypical mycobacterial infection
     Dosage: 590 MILLIGRAM, QD
     Route: 055
     Dates: start: 20250930, end: 20251114

REACTIONS (6)
  - Abdominal pain [Recovered/Resolved]
  - Hospitalisation [Unknown]
  - Drug intolerance [Unknown]
  - Cough [Not Recovered/Not Resolved]
  - Incorrect product administration duration [Unknown]
  - Therapy interrupted [Unknown]

NARRATIVE: CASE EVENT DATE: 20250101
